FAERS Safety Report 8198920-8 (Version None)
Quarter: 2012Q1

REPORT INFORMATION
  Report Type: 
  Country: None (occurrence: None)
  Receive Date: 20120309
  Receipt Date: 20120222
  Transmission Date: 20120608
  Serious: No
  Sender: FDA-Public Use
  Company Number: US-AMGEN-USASP2012007500

PATIENT
  Age: 72 Year
  Sex: Female

DRUGS (6)
  1. PROLIA [Suspect]
     Indication: OSTEOPOROSIS POSTMENOPAUSAL
     Dosage: UNK UNK, Q6MO
     Dates: start: 20120112
  2. FLAXSEED OIL [Concomitant]
     Dosage: UNK
  3. DICYCLOMINE [Concomitant]
     Dosage: UNK
  4. OMEPRAZOLE [Concomitant]
     Dosage: UNK
  5. VITAMIN D [Concomitant]
     Dosage: UNK
  6. CALCIUM [Concomitant]
     Dosage: UNK

REACTIONS (4)
  - ALOPECIA [None]
  - SINUSITIS [None]
  - BONE PAIN [None]
  - PAIN [None]
